FAERS Safety Report 16317229 (Version 2)
Quarter: 2020Q4

REPORT INFORMATION
  Report Type: Spontaneous
  Country: US (occurrence: US)
  Receive Date: 20190515
  Receipt Date: 20201019
  Transmission Date: 20210113
  Serious: No
  Sender: FDA-Public Use
  Company Number: US-SA-2019SA129949

PATIENT

DRUGS (23)
  1. LIDOCAINE/PRILOCAINE [Concomitant]
     Active Substance: LIDOCAINE\PRILOCAINE
  2. PANTOPRAZOLE SODIUM. [Concomitant]
     Active Substance: PANTOPRAZOLE SODIUM
  3. KEVZARA [Suspect]
     Active Substance: SARILUMAB
     Indication: RHEUMATOID ARTHRITIS
     Dosage: 200 MG, QW
     Route: 058
  4. IBUPROFEN. [Concomitant]
     Active Substance: IBUPROFEN
  5. HIZENTRA [Concomitant]
     Active Substance: HUMAN IMMUNOGLOBULIN G
  6. KEVZARA [Suspect]
     Active Substance: SARILUMAB
     Dosage: 200 MG, QOW, AS DIRECTED
     Route: 058
     Dates: start: 2018
  7. PENNSAID [Concomitant]
     Active Substance: DICLOFENAC SODIUM
  8. ATORVASTATIN CALCIUM. [Concomitant]
     Active Substance: ATORVASTATIN CALCIUM
  9. IBUPROFEN. [Concomitant]
     Active Substance: IBUPROFEN
  10. LEFLUNOMIDE. [Concomitant]
     Active Substance: LEFLUNOMIDE
  11. AMBIEN [Concomitant]
     Active Substance: ZOLPIDEM TARTRATE
  12. MULTIPLE VITAMINS [Concomitant]
     Active Substance: VITAMINS
  13. ALPRAZOLAM. [Concomitant]
     Active Substance: ALPRAZOLAM
  14. DIPHENHYDRAMINE. [Concomitant]
     Active Substance: DIPHENHYDRAMINE
  15. CHLORTHALIDONE. [Concomitant]
     Active Substance: CHLORTHALIDONE
  16. LISINOPRIL. [Concomitant]
     Active Substance: LISINOPRIL
  17. EPINEPHRINE. [Concomitant]
     Active Substance: EPINEPHRINE
  18. ACETAMINOPHEN. [Concomitant]
     Active Substance: ACETAMINOPHEN
  19. LORAZEPAM. [Concomitant]
     Active Substance: LORAZEPAM
  20. SOMA [Concomitant]
     Active Substance: CARISOPRODOL
  21. LEVITRA [Concomitant]
     Active Substance: VARDENAFIL HYDROCHLORIDE
  22. OXYCODONE AND ACETAMINOPHEN [Concomitant]
     Active Substance: ACETAMINOPHEN\OXYCODONE HYDROCHLORIDE
  23. NORCO [Concomitant]
     Active Substance: ACETAMINOPHEN\HYDROCODONE BITARTRATE

REACTIONS (3)
  - Product dose omission issue [Unknown]
  - Blood pressure increased [Unknown]
  - Product prescribing error [Unknown]
